FAERS Safety Report 16767497 (Version 1)
Quarter: 2019Q3

REPORT INFORMATION
  Report Type: Spontaneous
  Country: CA (occurrence: CA)
  Receive Date: 20190903
  Receipt Date: 20190903
  Transmission Date: 20191005
  Serious: Yes (Other)
  Sender: FDA-Public Use
  Company Number: CA-PFIZER INC-2019376925

PATIENT
  Age: 60 Year
  Sex: Female

DRUGS (2)
  1. DEXAMETHASONE. [Suspect]
     Active Substance: DEXAMETHASONE
     Dosage: 1 DF, 2X/DAY
     Route: 065
  2. ZOLEDRONIC ACID [Suspect]
     Active Substance: ZOLEDRONIC ACID
     Dosage: UNK [1 EVERY 4 WEEK(S)]
     Route: 065

REACTIONS (2)
  - Blood pressure increased [Not Recovered/Not Resolved]
  - Cushingoid [Not Recovered/Not Resolved]
